FAERS Safety Report 6182620-X (Version None)
Quarter: 2009Q2

REPORT INFORMATION
  Report Type: 
  Country: None (occurrence: None)
  Receive Date: 20090507
  Receipt Date: 20090505
  Transmission Date: 20091009
  Serious: Yes (Death, Hospitalization)
  Sender: FDA-Public Use
  Company Number: PHHY2009BR15885

PATIENT
  Age: 74 Year
  Sex: Female

DRUGS (1)
  1. LESCOL XL [Suspect]
     Indication: BLOOD CHOLESTEROL
     Dosage: UNK
     Route: 048
     Dates: start: 20060101

REACTIONS (2)
  - POST PROCEDURAL COMPLICATION [None]
  - VASCULAR GRAFT [None]
